FAERS Safety Report 4398299-3 (Version None)
Quarter: 2004Q3

REPORT INFORMATION
  Report Type: 
  Country: None (occurrence: None)
  Receive Date: 20040712
  Receipt Date: 20040624
  Transmission Date: 20050211
  Serious: Yes (Hospitalization)
  Sender: FDA-Public Use
  Company Number: 2004045232

PATIENT
  Age: 39 Year
  Sex: Female

DRUGS (5)
  1. ZYRTEC [Suspect]
     Indication: NEURODERMATITIS
     Dosage: 10 MG (DAILY), ORAL
     Route: 048
     Dates: start: 20030901, end: 20040101
  2. POTASSIUM CITRATE [Concomitant]
  3. HYDROXYZINE EMBONATE (HYDROXYZINE EMBONATE) [Concomitant]
  4. FLUDROXYCORTIDE (FLUDROXYCORTIDE) [Concomitant]
  5. CLOBETASOL PROPIONATE (CLOBETASOL PROPIONATE) [Concomitant]

REACTIONS (2)
  - EOSINOPHIL COUNT INCREASED [None]
  - PYREXIA [None]
